FAERS Safety Report 24876634 (Version 1)
Quarter: 2025Q1

REPORT INFORMATION
  Report Type: Spontaneous
  Country: FI (occurrence: FI)
  Receive Date: 20250123
  Receipt Date: 20250123
  Transmission Date: 20250409
  Serious: Yes (Life-Threatening)
  Sender: TAKEDA
  Company Number: None

PATIENT
  Age: 31 Year
  Sex: Female
  Weight: 65 kg

DRUGS (19)
  1. KIOVIG [Suspect]
     Active Substance: HUMAN IMMUNOGLOBULIN G
     Indication: Stiff person syndrome
  2. ATARAX [Concomitant]
     Active Substance: HYDROXYZINE HYDROCHLORIDE
  3. TRESIBA [Concomitant]
     Active Substance: INSULIN DEGLUDEC
     Dosage: 11 INTERNATIONAL UNIT, QD
     Dates: start: 20220629
  4. LEVETIRACETAM [Concomitant]
     Active Substance: LEVETIRACETAM
     Dosage: 1 GRAM, Q12H
     Dates: start: 20220920
  5. DIAZEPAM [Concomitant]
     Active Substance: DIAZEPAM
     Dosage: 70 MILLIGRAM, QD
     Dates: start: 20230926
  6. FUCIDIN [Concomitant]
     Active Substance: FUSIDATE SODIUM
  7. MIRENA [Concomitant]
     Active Substance: LEVONORGESTREL
  8. GABAPENTIN [Concomitant]
     Active Substance: GABAPENTIN
     Dosage: 1200 MILLIGRAM, QD
     Dates: start: 20240903
  9. VALACICLOVIR RATIOPHARM [Concomitant]
     Dosage: 500 MILLIGRAM, QD
     Dates: start: 20241209
  10. CARBOMER [Concomitant]
     Active Substance: CARBOMER
  11. PANTOPRAZOLE [Concomitant]
     Active Substance: PANTOPRAZOLE
  12. DORMIX [Concomitant]
  13. DIAZEPAM [Concomitant]
     Active Substance: DIAZEPAM
  14. ZOLMITRIPTAN [Concomitant]
     Active Substance: ZOLMITRIPTAN
  15. PANADOL FORTE [Concomitant]
  16. IBUPROFEN [Concomitant]
     Active Substance: IBUPROFEN
  17. Midazolam medical valley [Concomitant]
     Indication: Stiff person syndrome
  18. NOVORAPID [Concomitant]
     Active Substance: INSULIN ASPART
  19. ENOXAPARIN SODIUM [Concomitant]
     Active Substance: ENOXAPARIN SODIUM

REACTIONS (2)
  - Hypersensitivity [Recovering/Resolving]
  - Muscle spasms [Recovering/Resolving]

NARRATIVE: CASE EVENT DATE: 20241230
